FAERS Safety Report 10252201 (Version 1)
Quarter: 2014Q2

REPORT INFORMATION
  Report Type: Spontaneous
  Country: US (occurrence: US)
  Receive Date: 20140623
  Receipt Date: 20140623
  Transmission Date: 20141212
  Serious: Yes (Other)
  Sender: FDA-Public Use
  Company Number: US-AMGEN INC.-USASP2014046093

PATIENT
  Age: 57 Year
  Sex: Female

DRUGS (6)
  1. NEULASTA [Suspect]
     Indication: LEUKOPENIA
     Dosage: UNK
     Route: 065
  2. KLONOPIN [Suspect]
     Indication: GENERALISED ANXIETY DISORDER
     Dosage: 0.5 MG, UNK
     Route: 065
  3. SYNTHROID [Concomitant]
     Indication: HYPOTHYROIDISM
     Dosage: 0.125 MG, UNK
  4. RAMIPRIL [Concomitant]
     Dosage: 2.5 MG, UNK
  5. TAXOTERE [Concomitant]
     Indication: LEUKOPENIA
     Dosage: UNK
  6. CYTOXAN [Concomitant]
     Indication: LEUKOPENIA
     Dosage: UNK

REACTIONS (8)
  - Eye haemorrhage [Unknown]
  - Drug ineffective [Unknown]
  - Heart rate increased [Unknown]
  - Blood pressure increased [Unknown]
  - Rash [Unknown]
  - Urticaria [Unknown]
  - Urticaria [Unknown]
  - White blood cell count increased [Unknown]
